FAERS Safety Report 26160801 (Version 1)
Quarter: 2025Q4

REPORT INFORMATION
  Report Type: Spontaneous
  Country: EU (occurrence: EU)
  Receive Date: 20251216
  Receipt Date: 20251216
  Transmission Date: 20260117
  Serious: Yes (Hospitalization, Other)
  Sender: AUROBINDO
  Company Number: EU-AFSSAPS-NY2025001821

PATIENT
  Age: 67 Year
  Sex: Female
  Weight: 65.6 kg

DRUGS (12)
  1. DIAZEPAM [Suspect]
     Active Substance: DIAZEPAM
     Indication: Anxiety
     Dosage: 5 MILLIGRAM, ONCE A DAY
     Route: 061
     Dates: start: 20250522, end: 20250523
  2. DIAZEPAM [Suspect]
     Active Substance: DIAZEPAM
     Dosage: 10 MILLIGRAM, ONCE A DAY
     Route: 061
     Dates: start: 20250524, end: 20250602
  3. DIAZEPAM [Suspect]
     Active Substance: DIAZEPAM
     Dosage: 5 MILLIGRAM, ONCE A DAY
     Route: 061
     Dates: start: 20250603, end: 20250629
  4. MORPHINE [Suspect]
     Active Substance: MORPHINE
     Indication: Back pain
     Dosage: 0.5 MILLIGRAM
     Dates: start: 20250522, end: 20250525
  5. MORPHINE [Suspect]
     Active Substance: MORPHINE
     Dosage: 1.5 MILLIGRAM
     Dates: start: 20250525, end: 20250617
  6. MORPHINE [Suspect]
     Active Substance: MORPHINE
     Dosage: 30 MILLIGRAM
     Route: 061
     Dates: start: 20250617, end: 20250623
  7. MORPHINE [Suspect]
     Active Substance: MORPHINE
     Dosage: 20 MILLIGRAM
     Route: 061
     Dates: start: 20250624, end: 20250801
  8. NEFOPAM HYDROCHLORIDE [Suspect]
     Active Substance: NEFOPAM HYDROCHLORIDE
     Indication: Back pain
     Dosage: 30 MILLIGRAM, ONCE A DAY
     Route: 061
     Dates: start: 20250525, end: 20250620
  9. DOLIPRANE [Suspect]
     Active Substance: ACETAMINOPHEN
     Indication: Back pain
     Dosage: 1 GRAM, 3 TIMES A DAY
     Route: 061
     Dates: start: 20250523, end: 20250610
  10. BISOPROLOL VIATRIS 1,25 mg, comprim? pellicul? [Concomitant]
     Indication: Hypertension
     Dosage: 1.25 MILLIGRAM, ONCE A DAY
     Route: 061
  11. SIMVASTATINE ARROW 20 mg, comprim? pellicul? s?cable [Concomitant]
     Indication: Dyslipidaemia
     Dosage: 20 MILLIGRAM, ONCE A DAY
     Route: 061
  12. TRUXIMA 500 mg, solution ? diluer pour perfusion [Concomitant]
     Indication: Rheumatoid arthritis
     Route: 061

REACTIONS (1)
  - Cholestasis [Recovered/Resolved]

NARRATIVE: CASE EVENT DATE: 20250526
